FAERS Safety Report 7991607-3 (Version None)
Quarter: 2011Q4

REPORT INFORMATION
  Report Type: 
  Country: None (occurrence: None)
  Receive Date: 20111219
  Receipt Date: 20111011
  Transmission Date: 20120403
  Serious: No
  Sender: FDA-Public Use
  Company Number: US-ALLERGAN-1113413US

PATIENT
  Age: 81 Year
  Sex: Female

DRUGS (1)
  1. LUMIGAN [Suspect]
     Indication: GLAUCOMA
     Dosage: 2 GTT, QPM
     Route: 047
     Dates: start: 20111004

REACTIONS (5)
  - OCULAR HYPERAEMIA [None]
  - SCLERAL HYPERAEMIA [None]
  - OCULAR DISCOMFORT [None]
  - EYE INFLAMMATION [None]
  - BLEPHARITIS [None]
